FAERS Safety Report 23349980 (Version 1)
Quarter: 2023Q4

REPORT INFORMATION
  Report Type: Spontaneous
  Country: US (occurrence: US)
  Receive Date: 20231229
  Receipt Date: 20231229
  Transmission Date: 20240110
  Serious: Yes (Other)
  Sender: FDA-Public Use
  Company Number: US-ASTELLAS-2023US021136

PATIENT
  Sex: Male

DRUGS (2)
  1. PADCEV [Suspect]
     Active Substance: ENFORTUMAB VEDOTIN-EJFV
     Indication: Transitional cell carcinoma
     Dosage: 1 MG/KG, OTHER (REGULAR SCHEDULE)
     Route: 065
     Dates: start: 20230323, end: 20230407
  2. PADCEV [Suspect]
     Active Substance: ENFORTUMAB VEDOTIN-EJFV
     Dosage: 0.75 MG/KG, OTHER (REGULAR SCHEDULE)
     Route: 065
     Dates: start: 20230428

REACTIONS (1)
  - Blood glucose increased [Recovering/Resolving]
